FAERS Safety Report 4672634-0 (Version None)
Quarter: 2005Q2

REPORT INFORMATION
  Report Type: 
  Country: None (occurrence: None)
  Receive Date: 20050524
  Receipt Date: 20050509
  Transmission Date: 20051028
  Serious: Yes (Other)
  Sender: FDA-Public Use
  Company Number: US-GLAXOSMITHKLINE-A0557728A

PATIENT
  Age: 41 Year
  Sex: Female
  Weight: 61 kg

DRUGS (4)
  1. NICORETTE [Suspect]
     Indication: ILL-DEFINED DISORDER
     Route: 002
     Dates: start: 20020101
  2. PROVENTIL [Concomitant]
     Route: 055
  3. NARCOTIC ANALGESIC [Concomitant]
     Route: 062
  4. CLONOPIN [Concomitant]

REACTIONS (4)
  - DEPENDENCE [None]
  - HALITOSIS [None]
  - INTENTIONAL MISUSE [None]
  - SKIN ODOUR ABNORMAL [None]
